FAERS Safety Report 16808129 (Version 2)
Quarter: 2019Q3

REPORT INFORMATION
  Report Type: Spontaneous
  Country: US (occurrence: US)
  Receive Date: 20190916
  Receipt Date: 20190920
  Transmission Date: 20191005
  Serious: No
  Sender: FDA-Public Use
  Company Number: US-LEO PHARMA-325243

PATIENT
  Age: 62 Year
  Sex: Female

DRUGS (1)
  1. PICATO [Suspect]
     Active Substance: INGENOL MEBUTATE
     Indication: ACTINIC KERATOSIS
     Route: 061
     Dates: start: 20190906, end: 20190906

REACTIONS (11)
  - Oral discomfort [Not Recovered/Not Resolved]
  - Application site swelling [Recovered/Resolved]
  - Application site hypoaesthesia [Recovered/Resolved]
  - Application site discharge [Recovered/Resolved]
  - Application site exfoliation [Recovered/Resolved]
  - Application site vesicles [Recovered/Resolved]
  - Application site scab [Recovered/Resolved]
  - Application site discomfort [Recovered/Resolved]
  - Application site pain [Recovered/Resolved]
  - Asthenia [Recovered/Resolved]
  - Incorrect product administration duration [Unknown]

NARRATIVE: CASE EVENT DATE: 20190906
